FAERS Safety Report 5747730-7 (Version None)
Quarter: 2008Q2

REPORT INFORMATION
  Report Type: 
  Country: None (occurrence: None)
  Receive Date: 20080523
  Receipt Date: 20080520
  Transmission Date: 20081010
  Serious: Yes (Other)
  Sender: FDA-Public Use
  Company Number: US-ASTRAZENECA-2008UW10322

PATIENT
  Age: 45 Year
  Sex: Female
  Weight: 55.8 kg

DRUGS (4)
  1. CRESTOR [Suspect]
     Indication: HYPERCHOLESTEROLAEMIA
     Route: 048
     Dates: start: 20071101
  2. CLARITIN [Concomitant]
  3. CYANOCOBALAMIN [Concomitant]
  4. CLARITIN-D [Concomitant]

REACTIONS (1)
  - BLOOD PRESSURE INCREASED [None]
